FAERS Safety Report 8920925 (Version 1)
Quarter: 2012Q4

REPORT INFORMATION
  Report Type: 
  Country: FR (occurrence: FR)
  Receive Date: 20121123
  Receipt Date: 20121123
  Transmission Date: 20130627
  Serious: Yes (Hospitalization, Other)
  Sender: FDA-Public Use
  Company Number: FR-BRISTOL-MYERS SQUIBB COMPANY-17132283

PATIENT
  Sex: Female

DRUGS (3)
  1. ABILIFY [Suspect]
     Dosage: Dose reduced from 20 mg/d to 10 mg/d
  2. SERESTA [Suspect]
     Dosage: 1 on morning, 1 at midday, and 1 on evening
  3. DEPAKOTE [Suspect]
     Dosage: 250 mg on morning and 500 mg on evening

REACTIONS (7)
  - Suicide attempt [Unknown]
  - Thrombocytopenia [Unknown]
  - Hemiparesis [Unknown]
  - Pain in jaw [Unknown]
  - Mania [Unknown]
  - Pregnancy [Recovered/Resolved]
  - Live birth [Unknown]
